FAERS Safety Report 9214680 (Version 2)
Quarter: 2013Q4

REPORT INFORMATION
  Report Type: Spontaneous
  Country: US (occurrence: US)
  Receive Date: 20130405
  Receipt Date: 20131021
  Transmission Date: 20140711
  Serious: Yes (Hospitalization, Other)
  Sender: FDA-Public Use
  Company Number: US-BAYER-2013-040712

PATIENT
  Age: 16 Year
  Sex: Female

DRUGS (6)
  1. BEYAZ [Suspect]
     Dosage: UNK
     Dates: start: 2008, end: 2011
  2. NAPROSYN [Concomitant]
     Dosage: 500 MG,1 TO 2 TIMES A DAY AS NEEDED
     Route: 048
  3. TAMIFLU [Concomitant]
     Dosage: 75 MG, 1 TO 2 TIMES A DAY FOR 5 DAYS
     Route: 048
  4. OMEPRAZOLE [Concomitant]
     Dosage: 40 MG, UNK
     Route: 048
  5. TRAMADOL [Concomitant]
  6. ZOFRAN [Concomitant]

REACTIONS (8)
  - Gallbladder disorder [None]
  - Pain [None]
  - Injury [None]
  - Anxiety [None]
  - Emotional distress [None]
  - Nephrolithiasis [None]
  - Gastric disorder [None]
  - Biliary dyskinesia [None]
